FAERS Safety Report 10532964 (Version 4)
Quarter: 2015Q1

REPORT INFORMATION
  Report Type: Spontaneous
  Country: US (occurrence: US)
  Receive Date: 20141022
  Receipt Date: 20150128
  Transmission Date: 20150720
  Serious: Yes (Hospitalization)
  Sender: FDA-Public Use
  Company Number: US-UNITED THERAPEUTICS-UNT-2014-009404

PATIENT
  Age: 59 Year
  Sex: Female
  Weight: 116.1 kg

DRUGS (4)
  1. REVATIO [Concomitant]
     Active Substance: SILDENAFIL CITRATE
     Indication: PRODUCT USED FOR UNKNOWN INDICATION
  2. COUMADIN [Concomitant]
     Active Substance: WARFARIN SODIUM
     Indication: PRODUCT USED FOR UNKNOWN INDICATION
  3. REMODULIN [Suspect]
     Active Substance: TREPROSTINIL
     Indication: PULMONARY ARTERIAL HYPERTENSION
     Dosage: 0.0525 ?G/KG, CONTINUING
     Route: 041
     Dates: start: 20070601
  4. REMODULIN [Suspect]
     Active Substance: TREPROSTINIL
     Dosage: 0.0525 ?G/KG, CONTINUING
     Route: 041
     Dates: start: 20070601

REACTIONS (2)
  - Pneumonia [Unknown]
  - Atelectasis [Unknown]

NARRATIVE: CASE EVENT DATE: 20141013
